FAERS Safety Report 6504051-2 (Version None)
Quarter: 2009Q4

REPORT INFORMATION
  Report Type: 
  Country: None (occurrence: None)
  Receive Date: 20091215
  Receipt Date: 20091202
  Transmission Date: 20100525
  Serious: Yes (Hospitalization)
  Sender: FDA-Public Use
  Company Number: 2009AP004921

PATIENT
  Age: 50 Year
  Sex: Female

DRUGS (5)
  1. FENOFIBRATE [Suspect]
     Dosage: 200 MG; QD
  2. CITALOPRAM HYDROBROMIDE [Suspect]
     Dosage: 20 MG; QD
  3. ATORVASTATIN CALCIUM [Suspect]
     Dosage: 20 MG; QD
  4. BISOPROLOL FUMARATE [Concomitant]
  5. RAMIPRIL [Concomitant]

REACTIONS (6)
  - CHOLESTASIS [None]
  - DRUG TOXICITY [None]
  - HEPATITIS CHOLESTATIC [None]
  - IATROGENIC INJURY [None]
  - LIVER INJURY [None]
  - TREATMENT NONCOMPLIANCE [None]
